FAERS Safety Report 9000172 (Version 2)
Quarter: 2013Q1

REPORT INFORMATION
  Report Type: Spontaneous
  Country: JP (occurrence: JP)
  Receive Date: 20130102
  Receipt Date: 20130118
  Transmission Date: 20140127
  Serious: Yes (Hospitalization)
  Sender: FDA-Public Use
  Company Number: JP-JNJFOC-20121110973

PATIENT
  Age: 68 Year
  Sex: Female
  Weight: 52 kg

DRUGS (9)
  1. REMICADE [Suspect]
     Indication: PSORIASIS
     Route: 042
     Dates: start: 20120223
  2. REMICADE [Suspect]
     Indication: PSORIASIS
     Dosage: 7TH DOSE
     Route: 042
     Dates: start: 20121114
  3. ISOTONIC SODIUM CHLORIDE [Concomitant]
     Route: 065
     Dates: start: 20121114, end: 20121114
  4. BALOTEIN [Concomitant]
     Indication: HYPERTENSION
     Route: 048
  5. JANUVIA [Concomitant]
     Indication: DIABETES MELLITUS
     Route: 048
  6. ATORVASTATIN [Concomitant]
     Indication: HYPERLIPIDAEMIA
     Route: 048
  7. ZETIA [Concomitant]
     Indication: HYPERLIPIDAEMIA
     Route: 048
  8. ALLEGRA [Concomitant]
     Indication: PRURITUS
     Route: 048
  9. URSO [Concomitant]
     Indication: CHRONIC HEPATITIS
     Route: 048

REACTIONS (5)
  - Pyelonephritis [Recovering/Resolving]
  - Multi-organ failure [Unknown]
  - Urticaria [Recovered/Resolved]
  - Infusion related reaction [Recovered/Resolved]
  - Flushing [Recovered/Resolved]
